FAERS Safety Report 17214438 (Version 1)
Quarter: 2019Q4

REPORT INFORMATION
  Report Type: Report from Study
  Country: CA (occurrence: CA)
  Receive Date: 20191230
  Receipt Date: 20191230
  Transmission Date: 20200122
  Serious: Yes (Other)
  Sender: FDA-Public Use
  Company Number: CA-AEGERION PHARMACEUTICAL, INC-AEGR004642

PATIENT

DRUGS (1)
  1. JUXTAPID [Suspect]
     Active Substance: LOMITAPIDE MESYLATE
     Indication: PRODUCT USED FOR UNKNOWN INDICATION
     Dosage: UNK
     Route: 048
     Dates: end: 20191209

REACTIONS (2)
  - Hepatic enzyme increased [Unknown]
  - Therapy cessation [Unknown]

NARRATIVE: CASE EVENT DATE: 20191121
